FAERS Safety Report 9730803 (Version 1)
Quarter: 2013Q4

REPORT INFORMATION
  Report Type: Report from Study
  Country: RU (occurrence: RU)
  Receive Date: 20131205
  Receipt Date: 20131205
  Transmission Date: 20140711
  Serious: Yes (Hospitalization)
  Sender: FDA-Public Use
  Company Number: RU-ROCHE-1309740

PATIENT
  Age: 50 Year
  Sex: Male
  Weight: 86 kg

DRUGS (12)
  1. AVASTIN [Suspect]
     Indication: COLON CANCER
     Route: 042
     Dates: start: 20130729, end: 20131125
  2. AVASTIN [Suspect]
     Indication: METASTASES TO LIVER
  3. AVASTIN [Suspect]
     Indication: METASTASES TO LUNG
  4. FLUOROURACIL [Concomitant]
     Indication: COLON CANCER
     Dosage: 400 MG/M2 BOLUS 1-2 DAYS THEN 600 MG/M2 INTRAVENOUS DRIP
     Route: 042
     Dates: start: 20130729, end: 20131122
  5. FLUOROURACIL [Concomitant]
     Indication: METASTASES TO LIVER
  6. FLUOROURACIL [Concomitant]
     Indication: METASTASES TO LUNG
  7. LEUCOVORIN [Concomitant]
     Indication: COLON CANCER
     Route: 041
     Dates: start: 20130729, end: 20131122
  8. LEUCOVORIN [Concomitant]
     Indication: METASTASES TO LIVER
  9. LEUCOVORIN [Concomitant]
     Indication: METASTASES TO LUNG
  10. OXALIPLATIN [Concomitant]
     Indication: COLON CANCER
     Route: 041
     Dates: start: 20130729, end: 20131122
  11. OXALIPLATIN [Concomitant]
     Indication: METASTASES TO LIVER
  12. OXALIPLATIN [Concomitant]
     Indication: METASTASES TO LUNG

REACTIONS (2)
  - Metastases to liver [Unknown]
  - Therapeutic response decreased [Unknown]
